FAERS Safety Report 9174223 (Version 1)
Quarter: 2013Q1

REPORT INFORMATION
  Report Type: Spontaneous
  Country: GB (occurrence: GB)
  Receive Date: 20130320
  Receipt Date: 20130320
  Transmission Date: 20140127
  Serious: Yes (Other)
  Sender: FDA-Public Use
  Company Number: GB-PFIZER INC-2013088420

PATIENT
  Age: 79 Year
  Sex: Female
  Weight: 69.89 kg

DRUGS (8)
  1. ATORVASTATIN [Suspect]
     Dosage: UNK
     Dates: start: 20130228
  2. SIMVASTATIN [Concomitant]
     Dosage: UNK
     Dates: start: 20121112, end: 20130204
  3. ALENDRONIC ACID [Concomitant]
     Dosage: UNK
     Dates: start: 20121129
  4. SULFASALAZINE [Concomitant]
     Dosage: UNK
     Dates: start: 20121129
  5. CALCICHEW-D3 [Concomitant]
     Dosage: UNK
     Dates: start: 20121210, end: 20130104
  6. CALCICHEW-D3 [Concomitant]
     Dates: start: 20130222
  7. OMEPRAZOLE [Concomitant]
     Dosage: UNK
     Dates: start: 20130124, end: 20130221
  8. CETIRIZINE [Concomitant]
     Dosage: UNK
     Dates: start: 20130305

REACTIONS (1)
  - Eyelid oedema [Recovered/Resolved]
